FAERS Safety Report 11094689 (Version 1)
Quarter: 2015Q2

REPORT INFORMATION
  Report Type: Spontaneous
  Country: US (occurrence: US)
  Receive Date: 20150506
  Receipt Date: 20150506
  Transmission Date: 20150821
  Serious: Yes (Hospitalization)
  Sender: FDA-Public Use
  Company Number: US-PFIZER INC-2015044061

PATIENT
  Age: 49 Year
  Sex: Female

DRUGS (7)
  1. BUSPAR [Concomitant]
     Active Substance: BUSPIRONE HYDROCHLORIDE
     Dosage: 10 MG, 2X/DAY
     Dates: start: 201110
  2. CLONAPIN [Concomitant]
     Active Substance: CLONAZEPAM
     Dosage: 1 MG, 2X/DAY
     Dates: start: 201110
  3. LYRICA [Suspect]
     Active Substance: PREGABALIN
     Indication: PAIN
     Dosage: 150 MG, 2X/DAY
  4. TRAMADOL [Concomitant]
     Active Substance: TRAMADOL
     Dosage: 100 MG, 3X/DAY (50 MG 2 TABLETS 3 TIMES A DAY)
     Dates: start: 201110
  5. LOVENOX [Concomitant]
     Active Substance: ENOXAPARIN SODIUM
     Dosage: 1 MG, 2X/DAY (EVERY 12 HRS)
     Dates: start: 201110
  6. NEURONTIN [Concomitant]
     Active Substance: GABAPENTIN
     Dosage: 600 MG, 3X/DAY (300 MG 2 TABLETS 3 TIMES A DAY)
     Dates: start: 201110
  7. LISINOPRIL HCTZ [Concomitant]
     Active Substance: HYDROCHLOROTHIAZIDE\LISINOPRIL
     Dosage: 20-25 MG, 1X/DAY
     Dates: start: 201110

REACTIONS (1)
  - Thrombosis [Not Recovered/Not Resolved]
